FAERS Safety Report 8641273 (Version 2)
Quarter: 2014Q1

REPORT INFORMATION
  Report Type: Spontaneous
  Country: CH (occurrence: CH)
  Receive Date: 20120628
  Receipt Date: 20140210
  Transmission Date: 20141002
  Serious: Yes (Other)
  Sender: FDA-Public Use
  Company Number: CH-ELI_LILLY_AND_COMPANY-CH201206005090

PATIENT
  Age: 45 Year
  Sex: Female

DRUGS (3)
  1. FLUCTINE [Suspect]
     Indication: PRODUCT USED FOR UNKNOWN INDICATION
     Dosage: 1 DF, QD
     Route: 048
  2. TEGRETOL CR [Suspect]
     Indication: EPILEPSY
     Dosage: 1200 MG, QD
     Route: 065
  3. DEPAKINE CHRONO [Suspect]
     Indication: EPILEPSY
     Dosage: 500 MG, QD
     Route: 065
     Dates: end: 20120417

REACTIONS (2)
  - Exposure during pregnancy [Unknown]
  - Abortion spontaneous [Unknown]
